FAERS Safety Report 7020613-0 (Version None)
Quarter: 2010Q3

REPORT INFORMATION
  Report Type: 
  Country: None (occurrence: None)
  Receive Date: 20100929
  Receipt Date: 20100923
  Transmission Date: 20110219
  Serious: Yes (Hospitalization)
  Sender: FDA-Public Use
  Company Number: A0882961A

PATIENT
  Age: 53 Year
  Sex: Female

DRUGS (3)
  1. VENTOLIN [Suspect]
     Indication: EMPHYSEMA
     Dosage: 2PUFF AS REQUIRED
     Route: 055
     Dates: start: 20090401
  2. SYMBICORT [Concomitant]
  3. SPIRIVA [Concomitant]

REACTIONS (1)
  - LUNG INFECTION [None]
